FAERS Safety Report 4963599-2 (Version None)
Quarter: 2006Q1

REPORT INFORMATION
  Report Type: 
  Country: None (occurrence: None)
  Receive Date: 20060201
  Receipt Date: 20051114
  Transmission Date: 20060701
  Serious: No
  Sender: FDA-Public Use
  Company Number: 2005PV004727

PATIENT
  Age: 45 Year
  Sex: Female
  Weight: 87.5442 kg

DRUGS (7)
  1. BYETTA [Suspect]
     Indication: DIABETES MELLITUS NON-INSULIN-DEPENDENT
     Dosage: 5 MCG, BID, SC
     Route: 058
     Dates: start: 20051017
  2. METFORMIN [Concomitant]
  3. LOPID [Concomitant]
  4. CARDIA XL [Concomitant]
  5. PROMETRIUM [Concomitant]
  6. CITOLAPRAM [Concomitant]
  7. HYZAAR [Concomitant]

REACTIONS (5)
  - DECREASED APPETITE [None]
  - DYSGEUSIA [None]
  - NAUSEA [None]
  - VOMITING [None]
  - WEIGHT DECREASED [None]
